FAERS Safety Report 7997417-5 (Version None)
Quarter: 2011Q4

REPORT INFORMATION
  Report Type: 
  Country: None (occurrence: None)
  Receive Date: 20111221
  Receipt Date: 20111212
  Transmission Date: 20120403
  Serious: Yes (Other)
  Sender: FDA-Public Use
  Company Number: US-JNJFOC-20111206488

PATIENT
  Sex: Male

DRUGS (2)
  1. ORTHO-NOVUM [Suspect]
     Indication: FOETAL EXPOSURE DURING PREGNANCY
     Route: 064
     Dates: start: 20110101, end: 20110201
  2. ORTHO EVRA [Suspect]
     Indication: FOETAL EXPOSURE DURING PREGNANCY
     Route: 064
     Dates: start: 20101101, end: 20110101

REACTIONS (4)
  - LIP DISORDER [None]
  - JAW DISORDER [None]
  - ANKYLOGLOSSIA CONGENITAL [None]
  - FEEDING DISORDER NEONATAL [None]
